FAERS Safety Report 19144182 (Version 3)
Quarter: 2021Q3

REPORT INFORMATION
  Report Type: Report from Study
  Country: JP (occurrence: JP)
  Receive Date: 20210416
  Receipt Date: 20210908
  Transmission Date: 20211014
  Serious: Yes (Death, Hospitalization)
  Sender: FDA-Public Use
  Company Number: JP-JNJFOC-A-CH2019-191800

PATIENT
  Age: 68 Year
  Sex: Female
  Weight: 54.4 kg

DRUGS (24)
  1. UPTRAVI [Suspect]
     Active Substance: SELEXIPAG
     Indication: PULMONARY HYPERTENSION
     Dosage: 0.1 MG, BID
     Route: 048
     Dates: start: 20181026
  2. RIONA [Concomitant]
     Active Substance: FERRIC CITRATE ANHYDROUS
     Indication: HYPERPHOSPHATAEMIA
     Dates: end: 20190420
  3. MAINTATE [Concomitant]
     Active Substance: BISOPROLOL FUMARATE
  4. RENAGEL [Concomitant]
     Active Substance: SEVELAMER HYDROCHLORIDE
     Indication: HYPERPHOSPHATAEMIA
     Dates: end: 20190420
  5. RISUMIC [Concomitant]
     Active Substance: AMEZINIUM METILSULFATE
     Indication: HYPOTENSION
  6. PROMAC [Concomitant]
     Active Substance: NITROFURANTOIN
     Indication: PROPHYLAXIS
  7. REVATIO [Concomitant]
     Active Substance: SILDENAFIL CITRATE
  8. NAUZELIN [Concomitant]
     Active Substance: DOMPERIDONE
     Indication: NAUSEA
  9. FOSRENOL [Concomitant]
     Active Substance: LANTHANUM CARBONATE
     Indication: HYPERPHOSPHATAEMIA
     Dates: end: 20190420
  10. OPSUMIT [Suspect]
     Active Substance: MACITENTAN
     Indication: PULMONARY ARTERIAL HYPERTENSION
     Dosage: 5 MG, QD
     Route: 048
     Dates: start: 20170220, end: 20181107
  11. SHAKUYAKUKANZOTO [Concomitant]
     Active Substance: HERBALS
     Indication: MUSCLE SPASMS
  12. METHYCOBAL [Concomitant]
     Active Substance: METHYLCOBALAMIN
     Indication: HYPOAESTHESIA
  13. OPSUMIT [Suspect]
     Active Substance: MACITENTAN
     Route: 048
     Dates: start: 20170220
  14. UPTRAVI [Suspect]
     Active Substance: SELEXIPAG
     Indication: PULMONARY ARTERIAL HYPERTENSION
     Dosage: 0.2 MG, BID
     Route: 048
     Dates: start: 20181106, end: 20181110
  15. ACINON [Concomitant]
     Active Substance: NIZATIDINE
  16. TERNELIN [Concomitant]
     Active Substance: TIZANIDINE
     Indication: MUSCLE SPASMS
  17. NORVASC [Concomitant]
     Active Substance: AMLODIPINE BESYLATE
     Indication: HYPERTENSION
     Dates: end: 20190318
  18. WARFARIN [Concomitant]
     Active Substance: WARFARIN
  19. OXYGEN. [Concomitant]
     Active Substance: OXYGEN
  20. OPSUMIT [Suspect]
     Active Substance: MACITENTAN
     Indication: PULMONARY HYPERTENSION
     Dosage: 10 MG, QD
     Route: 048
     Dates: start: 20181108, end: 20190520
  21. REGPARA [Concomitant]
     Active Substance: CINACALCET HYDROCHLORIDE
     Indication: CHRONIC KIDNEY DISEASE
  22. FEBURIC [Concomitant]
     Active Substance: FEBUXOSTAT
     Indication: PROPHYLAXIS
     Dates: end: 20190420
  23. DOPS [Concomitant]
     Active Substance: DROXIDOPA
     Indication: HYPOTENSION
  24. ALLEGRA [Concomitant]
     Active Substance: FEXOFENADINE HYDROCHLORIDE

REACTIONS (4)
  - Hypoxia [Fatal]
  - Respiratory failure [Fatal]
  - Pneumonia [Fatal]
  - Rash [Recovered/Resolved]

NARRATIVE: CASE EVENT DATE: 20181110
